FAERS Safety Report 18512327 (Version 7)
Quarter: 2021Q1

REPORT INFORMATION
  Report Type: Report from Study
  Country: PL (occurrence: PL)
  Receive Date: 20201117
  Receipt Date: 20210329
  Transmission Date: 20210419
  Serious: Yes (Hospitalization)
  Sender: FDA-Public Use
  Company Number: PL-PFIZER INC-2020444539

PATIENT
  Age: 62 Year
  Sex: Male
  Weight: 79 kg

DRUGS (13)
  1. ZOXON [DOXAZOSIN MESILATE] [Concomitant]
     Dosage: UNK
     Dates: start: 2008
  2. SUNITINIB MALATE. [Suspect]
     Active Substance: SUNITINIB MALATE
     Dosage: 50 MG, 1X/DAY
     Route: 048
     Dates: start: 20200617, end: 20200715
  3. VITAMIN A+D GRX OINTMENT [Concomitant]
     Dosage: UNK
     Dates: start: 20200909
  4. SUNITINIB MALATE. [Suspect]
     Active Substance: SUNITINIB MALATE
     Indication: GASTROINTESTINAL STROMAL TUMOUR
     Dosage: 50 MG, 1X/DAY
     Route: 048
     Dates: start: 20200212, end: 20200311
  5. SUNITINIB MALATE. [Suspect]
     Active Substance: SUNITINIB MALATE
     Dosage: 50 MG, 1X/DAY
     Route: 048
     Dates: start: 20200506, end: 20200603
  6. SUNITINIB MALATE. [Suspect]
     Active Substance: SUNITINIB MALATE
     Dosage: 50 MG, 1X/DAY
     Route: 048
     Dates: start: 20200729, end: 20200826
  7. LIPANTHYL SUPRA [Concomitant]
     Active Substance: FENOFIBRATE
     Dosage: UNK
     Dates: start: 20200311
  8. ENARENAL [Concomitant]
     Active Substance: ENALAPRIL
     Dosage: UNK
     Dates: start: 20200415
  9. SUNITINIB MALATE. [Suspect]
     Active Substance: SUNITINIB MALATE
     Dosage: 50 MG, 1X/DAY
     Route: 048
     Dates: start: 20200909, end: 20201007
  10. ACLOTIN [TICLOPIDINE HYDROCHLORIDE] [Concomitant]
     Dosage: UNK
     Dates: start: 2008
  11. CONCOR [Concomitant]
     Active Substance: BISOPROLOL FUMARATE
     Dosage: UNK
     Dates: start: 2008
  12. SUNITINIB MALATE. [Suspect]
     Active Substance: SUNITINIB MALATE
     Dosage: 50 MG, 1X/DAY
     Route: 048
     Dates: start: 20200325, end: 20200422
  13. PANTOPRAZOL [PANTOPRAZOLE] [Concomitant]
     Active Substance: PANTOPRAZOLE
     Dosage: UNK
     Dates: start: 20200909

REACTIONS (1)
  - Gastrointestinal haemorrhage [Recovered/Resolved]

NARRATIVE: CASE EVENT DATE: 20201014
